FAERS Safety Report 16412850 (Version 2)
Quarter: 2020Q2

REPORT INFORMATION
  Report Type: Spontaneous
  Country: FR (occurrence: FR)
  Receive Date: 20190611
  Receipt Date: 20200507
  Transmission Date: 20200713
  Serious: Yes (Other)
  Sender: FDA-Public Use
  Company Number: FR-BRISTOL-MYERS SQUIBB COMPANY-BMS-2019-054903

PATIENT
  Age: 57 Year
  Sex: Female

DRUGS (1)
  1. ELIQUIS [Suspect]
     Active Substance: APIXABAN
     Indication: TRICUSPID VALVE REPAIR
     Dosage: 5 MILLIGRAM, BID
     Route: 065
     Dates: start: 2010

REACTIONS (3)
  - Stress fracture [Unknown]
  - Necrosis [Unknown]
  - Intentional product use issue [Unknown]
